FAERS Safety Report 12689372 (Version 1)
Quarter: 2016Q3

REPORT INFORMATION
  Report Type: Spontaneous
  Country: JP (occurrence: JP)
  Receive Date: 20160826
  Receipt Date: 20160826
  Transmission Date: 20161109
  Serious: Yes (Other)
  Sender: FDA-Public Use
  Company Number: JP-AMGEN-JPNSP2016112243

PATIENT

DRUGS (2)
  1. VECTIBIX [Suspect]
     Active Substance: PANITUMUMAB
     Indication: COLORECTAL CANCER METASTATIC
     Dosage: 6 MG/KG, Q2WEEKS
     Route: 041
  2. IRINOTECAN HYDROCHLORIDE. [Concomitant]
     Active Substance: IRINOTECAN HYDROCHLORIDE
     Indication: COLORECTAL CANCER METASTATIC
     Dosage: UNK
     Route: 041

REACTIONS (13)
  - Alanine aminotransferase increased [Unknown]
  - Febrile neutropenia [Unknown]
  - Anaemia [Unknown]
  - Dermatitis acneiform [Unknown]
  - Stomatitis [Unknown]
  - Paronychia [Unknown]
  - Leukopenia [Unknown]
  - Diarrhoea [Unknown]
  - Nausea [Unknown]
  - Neutropenia [Unknown]
  - Aspartate aminotransferase increased [Unknown]
  - Hypomagnesaemia [Unknown]
  - Decreased appetite [Unknown]
